FAERS Safety Report 6483501-4 (Version None)
Quarter: 2009Q4

REPORT INFORMATION
  Report Type: 
  Country: None (occurrence: None)
  Receive Date: 20091209
  Receipt Date: 20091125
  Transmission Date: 20100525
  Serious: Yes (Other)
  Sender: FDA-Public Use
  Company Number: ES-EISAI INC.-E3810-03337-SPO-ES

PATIENT
  Age: 73 Year
  Sex: Male

DRUGS (3)
  1. PARIET (RABEPRAZOLE) [Suspect]
     Route: 048
     Dates: start: 20080101
  2. PREGABALIN [Interacting]
     Route: 048
     Dates: start: 20080901
  3. DULOXETINE HYDROCHLORIDE [Interacting]
     Indication: DEPRESSION
     Route: 048
     Dates: start: 20080601

REACTIONS (2)
  - CONSTIPATION [None]
  - DRUG INTERACTION [None]
